FAERS Safety Report 10077637 (Version 2)
Quarter: 2014Q2

REPORT INFORMATION
  Report Type: Spontaneous
  Country: US (occurrence: US)
  Receive Date: 20140414
  Receipt Date: 20140414
  Transmission Date: 20141212
  Serious: No
  Sender: FDA-Public Use
  Company Number: US-BANPHARM-20142035

PATIENT
  Age: 19 Year
  Sex: Female
  Weight: 111.13 kg

DRUGS (7)
  1. ALEVE LIQUID GELS 220 MG [Suspect]
     Indication: HEADACHE
     Dosage: 2 DF, PRN,
     Route: 048
     Dates: start: 2007
  2. HYDROCHLOROTHIAZIDE [Concomitant]
     Route: 048
  3. DIOVAN [Concomitant]
  4. ZYRTEC [Concomitant]
  5. NEXIUM [Concomitant]
  6. BIRTH CONTROL [Concomitant]
  7. SINGULAIR [Concomitant]

REACTIONS (1)
  - Drug ineffective [Unknown]
